FAERS Safety Report 10140295 (Version 1)
Quarter: 2014Q2

REPORT INFORMATION
  Report Type: Report from Study
  Country: US (occurrence: US)
  Receive Date: 20140429
  Receipt Date: 20140429
  Transmission Date: 20141212
  Serious: Yes (Other)
  Sender: FDA-Public Use
  Company Number: US-BAXTER-2014BAX020320

PATIENT
  Sex: Male

DRUGS (1)
  1. ADVATE [Suspect]
     Indication: HAEMOPHILIA
     Route: 065

REACTIONS (2)
  - Haemarthrosis [Unknown]
  - Multiple injuries [Unknown]
